FAERS Safety Report 13116915 (Version 1)
Quarter: 2017Q1

REPORT INFORMATION
  Report Type: Spontaneous
  Country: US (occurrence: US)
  Receive Date: 20170116
  Receipt Date: 20170116
  Transmission Date: 20170428
  Serious: No
  Sender: FDA-Public Use
  Company Number: US-PFIZER INC-2017017930

PATIENT
  Sex: Male

DRUGS (1)
  1. XELJANZ [Suspect]
     Active Substance: TOFACITINIB CITRATE
     Dosage: UNK

REACTIONS (6)
  - Arthralgia [Unknown]
  - Hypoaesthesia [Unknown]
  - Paranasal sinus discomfort [Unknown]
  - Fatigue [Unknown]
  - Paraesthesia [Unknown]
  - Joint swelling [Unknown]
